FAERS Safety Report 4594375-0 (Version None)
Quarter: 2005Q1

REPORT INFORMATION
  Report Type: 
  Country: None (occurrence: None)
  Receive Date: 20050301
  Receipt Date: 20041210
  Transmission Date: 20050727
  Serious: No
  Sender: FDA-Public Use
  Company Number: US-GLAXOSMITHKLINE-A0536840A

PATIENT
  Age: 42 Year
  Sex: Female

DRUGS (9)
  1. VALTREX [Suspect]
     Dosage: 500MG PER DAY
     Route: 048
  2. SENNA [Concomitant]
  3. SONE [Concomitant]
  4. AMBIEN [Concomitant]
  5. OXYCODONE HCL [Concomitant]
  6. OXYCONTIN [Concomitant]
  7. AMITRIPTYLINE HCL [Concomitant]
  8. VICODIN [Concomitant]
  9. PROZAC [Concomitant]

REACTIONS (4)
  - ABASIA [None]
  - DIZZINESS [None]
  - DRUG INEFFECTIVE [None]
  - NAUSEA [None]
